FAERS Safety Report 9038974 (Version 1)
Quarter: 2013Q1

REPORT INFORMATION
  Report Type: Spontaneous
  Country: US (occurrence: None)
  Receive Date: 20130123
  Receipt Date: 20130123
  Transmission Date: 20140127
  Serious: Yes (Other)
  Sender: FDA-Public Use
  Company Number: None

PATIENT
  Age: 69 Year
  Sex: Male
  Weight: 88.6 kg

DRUGS (1)
  1. VALSTAR [Suspect]
     Indication: BLADDER CANCER
     Route: 066
     Dates: start: 20121213

REACTIONS (3)
  - Dysuria [None]
  - Haematuria [None]
  - Urinary incontinence [None]
